FAERS Safety Report 6044191-8 (Version None)
Quarter: 2009Q1

REPORT INFORMATION
  Report Type: 
  Country: None (occurrence: None)
  Receive Date: 20090115
  Receipt Date: 20090115
  Transmission Date: 20090719
  Serious: Yes (Hospitalization, Disabling)
  Sender: FDA-Public Use
  Company Number: None

PATIENT
  Sex: Male

DRUGS (6)
  1. AREDIA [Suspect]
     Indication: MULTIPLE MYELOMA
     Dosage: 90 MG MONTHLY IV
     Route: 042
     Dates: start: 19970101, end: 20010101
  2. CHEMOTHERAPY (UNKNOWN AGENT) [Concomitant]
  3. EXTERNAL BEAM RADIATION [Concomitant]
  4. COUMADIN [Concomitant]
  5. SYNTHROID [Concomitant]
  6. NORVASC [Concomitant]

REACTIONS (4)
  - BONE DISORDER [None]
  - IMPLANT SITE REACTION [None]
  - JAW DISORDER [None]
  - SECRETION DISCHARGE [None]
